FAERS Safety Report 20992723 (Version 2)
Quarter: 2022Q3

REPORT INFORMATION
  Report Type: Spontaneous
  Country: LU (occurrence: LU)
  Receive Date: 20220622
  Receipt Date: 20220711
  Transmission Date: 20221027
  Serious: Yes (Life-Threatening, Hospitalization, Disabling, Other)
  Sender: FDA-Public Use
  Company Number: None

PATIENT
  Age: 27 Year
  Sex: Female
  Weight: 144 kg

DRUGS (6)
  1. ESKETAMINE HYDROCHLORIDE [Suspect]
     Active Substance: ESKETAMINE HYDROCHLORIDE
     Dosage: 7.5 MG
     Route: 042
     Dates: start: 20220603, end: 20220603
  2. ROCURONIUM BROMIDE [Suspect]
     Active Substance: ROCURONIUM BROMIDE
     Indication: General anaesthesia
     Dosage: 100 MG, SINGLE
     Dates: start: 20220603, end: 20220603
  3. PROPOFOL [Suspect]
     Active Substance: PROPOFOL
     Indication: General anaesthesia
     Dosage: 280 MG, SINGLE
     Dates: start: 20220603, end: 20220603
  4. XYLOCAINE [Suspect]
     Active Substance: LIDOCAINE HYDROCHLORIDE
     Indication: Anaesthesia
     Dosage: 0.0165 MG/KG/MINUTE
     Dates: start: 20220603, end: 20220603
  5. SUFENTA [Concomitant]
     Active Substance: SUFENTANIL CITRATE
     Indication: General anaesthesia
     Dosage: 10 UG, SINGLE
     Dates: start: 20220603, end: 20220603
  6. ALBUTEROL SULFATE [Concomitant]
     Active Substance: ALBUTEROL SULFATE
     Dosage: UNK

REACTIONS (6)
  - Cardio-respiratory arrest [Recovering/Resolving]
  - Anaphylactic shock [Recovering/Resolving]
  - Multiple organ dysfunction syndrome [Recovering/Resolving]
  - Hypoxia [Unknown]
  - Hypokalaemia [Unknown]
  - Tachycardia [Unknown]

NARRATIVE: CASE EVENT DATE: 20220603
